FAERS Safety Report 7494613-0 (Version None)
Quarter: 2011Q2

REPORT INFORMATION
  Report Type: 
  Country: None (occurrence: None)
  Receive Date: 20110520
  Receipt Date: 20110516
  Transmission Date: 20111010
  Serious: Yes (Hospitalization)
  Sender: FDA-Public Use
  Company Number: US-GILEAD-2011-0038700

PATIENT
  Sex: Female

DRUGS (12)
  1. COUMADIN [Concomitant]
  2. TEKTURNA [Concomitant]
  3. LETAIRIS [Suspect]
     Indication: PULMONARY HYPERTENSION
     Route: 048
     Dates: start: 20101201, end: 20110411
  4. NEXIUM [Concomitant]
  5. K-DUR [Concomitant]
  6. ASPIRIN [Concomitant]
  7. ZYROXYLINE [Concomitant]
  8. BYSTOLIC [Concomitant]
  9. MAGNESIUM OXIDE [Concomitant]
  10. DIOVAN [Concomitant]
  11. LASIX [Concomitant]
  12. CYRUITE [Concomitant]

REACTIONS (4)
  - FATIGUE [None]
  - HAEMOGLOBIN DECREASED [None]
  - DYSPNOEA [None]
  - HAEMATOCRIT DECREASED [None]
